FAERS Safety Report 22823631 (Version 5)
Quarter: 2025Q2

REPORT INFORMATION
  Report Type: Spontaneous
  Country: US (occurrence: US)
  Receive Date: 20230815
  Receipt Date: 20250402
  Transmission Date: 20250717
  Serious: Yes (Other)
  Sender: PFIZER
  Company Number: US-PFIZER INC-PV202300139891

PATIENT
  Age: 78 Year
  Sex: Female

DRUGS (2)
  1. IBRANCE [Suspect]
     Active Substance: PALBOCICLIB
     Indication: Breast cancer metastatic
  2. IBRANCE [Suspect]
     Active Substance: PALBOCICLIB
     Indication: Hormone receptor positive breast cancer
     Route: 048

REACTIONS (3)
  - Dementia [Unknown]
  - Leukopenia [Unknown]
  - Thrombocytopenia [Unknown]
